FAERS Safety Report 11236636 (Version 1)
Quarter: 2015Q3

REPORT INFORMATION
  Report Type: Spontaneous
  Country: US (occurrence: US)
  Receive Date: 20150702
  Receipt Date: 20150702
  Transmission Date: 20151125
  Serious: Yes (Other)
  Sender: FDA-Public Use
  Company Number: US-AMGEN-USASP2015064813

PATIENT
  Age: 56 Year
  Sex: Female

DRUGS (1)
  1. ENBREL [Suspect]
     Active Substance: ETANERCEPT
     Indication: PSORIATIC ARTHROPATHY
     Dosage: 25 MG, 2 TIMES/WK
     Route: 065
     Dates: start: 20040701

REACTIONS (9)
  - Cyst [Unknown]
  - Injection site pain [Recovered/Resolved]
  - Nasopharyngitis [Recovered/Resolved]
  - Smear cervix [Recovered/Resolved]
  - Psoriasis [Not Recovered/Not Resolved]
  - Staphylococcal infection [Recovered/Resolved]
  - Biopsy cervix [Recovered/Resolved]
  - Cough [Recovered/Resolved]
  - Wound [Unknown]

NARRATIVE: CASE EVENT DATE: 2015
